FAERS Safety Report 5052436-6 (Version None)
Quarter: 2006Q2

REPORT INFORMATION
  Report Type: 
  Country: None (occurrence: None)
  Receive Date: 20060614
  Receipt Date: 20060320
  Transmission Date: 20061013
  Serious: Yes (Other)
  Sender: FDA-Public Use
  Company Number: 441287

PATIENT
  Age: 66 Year
  Sex: Female

DRUGS (7)
  1. BONIVA [Suspect]
     Indication: OSTEOPOROSIS
     Dosage: 150 MG 1 PER MONTH ORAL
     Route: 048
  2. BENICAR [Concomitant]
  3. SYNTHROID [Concomitant]
  4. GLUCOSAMINE (GLUCOSAMINE) [Concomitant]
  5. ACETYLSALICYLIC ACID TABLETS (ASPIRIN) [Concomitant]
  6. CALCIUM (CALCIUM) [Concomitant]
  7. MULTIVITAMIN [Concomitant]

REACTIONS (2)
  - LOOSE TOOTH [None]
  - TOOTH DISORDER [None]
